FAERS Safety Report 12564242 (Version 1)
Quarter: 2016Q3

REPORT INFORMATION
  Report Type: Spontaneous
  Country: US (occurrence: None)
  Receive Date: 20160715
  Receipt Date: 20160715
  Transmission Date: 20161109
  Serious: Yes (Life-Threatening, Other)
  Sender: FDA-Public Use
  Company Number: None

PATIENT
  Age: 54 Year
  Sex: Female
  Weight: 59.88 kg

DRUGS (4)
  1. TYLENOL [Concomitant]
     Active Substance: ACETAMINOPHEN
  2. LEVOFLOXACIN, 500 MG AUROBIND PHARM [Suspect]
     Active Substance: LEVOFLOXACIN
     Indication: URINARY TRACT INFECTION
     Route: 048
     Dates: start: 20160708, end: 20160711
  3. TOPROL XL [Concomitant]
     Active Substance: METOPROLOL SUCCINATE
  4. SHAKLEE MULTIVIAMIN [Concomitant]

REACTIONS (10)
  - Vomiting [None]
  - Swelling [None]
  - Urinary retention [None]
  - Drug ineffective [None]
  - Kidney infection [None]
  - Pyrexia [None]
  - Bedridden [None]
  - Headache [None]
  - Product substitution issue [None]
  - Malaise [None]

NARRATIVE: CASE EVENT DATE: 20160708
